FAERS Safety Report 7987262-9 (Version None)
Quarter: 2011Q4

REPORT INFORMATION
  Report Type: 
  Country: None (occurrence: None)
  Receive Date: 20111216
  Receipt Date: 20110629
  Transmission Date: 20120403
  Serious: Yes (Hospitalization)
  Sender: FDA-Public Use
  Company Number: US-BRISTOL-MYERS SQUIBB COMPANY-15639743

PATIENT
  Age: 26 Year
  Sex: Female

DRUGS (3)
  1. ABILIFY [Suspect]
     Indication: BIPOLAR DISORDER
     Dosage: 1YRS
     Route: 048
     Dates: start: 20100112, end: 20110328
  2. CYMBALTA [Concomitant]
     Dosage: 2YRS
     Dates: start: 20090120
  3. ADDERALL 5 [Concomitant]
     Dosage: 5YRS
     Dates: start: 20081027

REACTIONS (2)
  - CONVULSION [None]
  - HYPOTENSION [None]
